FAERS Safety Report 16734570 (Version 1)
Quarter: 2019Q4

REPORT INFORMATION
  Report Type: Spontaneous
  Country: US (occurrence: US)
  Receive Date: 20190822
  Receipt Date: 20190822
  Transmission Date: 20200122
  Serious: No
  Sender: FDA-Public Use
  Company Number: None

PATIENT
  Age: 55 Year
  Sex: Female

DRUGS (1)
  1. ESTRADIOL TRANSDERMAL SYSTEM [Suspect]
     Active Substance: ESTRADIOL
     Indication: HORMONE REPLACEMENT THERAPY
     Dosage: ?          OTHER FREQUENCY:TWICE A WEEK;?
     Route: 062
     Dates: start: 20180426

REACTIONS (3)
  - Breast tenderness [None]
  - Vaginal haemorrhage [None]
  - Product quality issue [None]

NARRATIVE: CASE EVENT DATE: 20190801
